FAERS Safety Report 21821546 (Version 1)
Quarter: 2023Q1

REPORT INFORMATION
  Report Type: Spontaneous
  Country: US (occurrence: US)
  Receive Date: 20230105
  Receipt Date: 20230105
  Transmission Date: 20230417
  Serious: Yes (Other)
  Sender: FDA-Public Use
  Company Number: US-SIMILASAN-2022USSIMSPO00238

PATIENT

DRUGS (1)
  1. IVIZIA [Suspect]
     Active Substance: POVIDONE
     Indication: Dry eye
     Dosage: 2 DROPS IN EACH EYE
     Route: 047
     Dates: start: 20221230, end: 20221230

REACTIONS (3)
  - Syncope [Recovered/Resolved]
  - Dizziness [Recovered/Resolved]
  - Cold sweat [Recovered/Resolved]

NARRATIVE: CASE EVENT DATE: 20221230
